FAERS Safety Report 5796240-X (Version None)
Quarter: 2008Q2

REPORT INFORMATION
  Report Type: 
  Country: None (occurrence: None)
  Receive Date: 20080618
  Receipt Date: 20070906
  Transmission Date: 20081010
  Serious: Yes (Other)
  Sender: FDA-Public Use
  Company Number: 200715698US

PATIENT
  Age: 57 Year
  Sex: Male

DRUGS (6)
  1. LANTUS [Suspect]
     Indication: TYPE 1 DIABETES MELLITUS
     Dosage: 10 U
     Dates: start: 20020101, end: 20070730
  2. LANTUS [Suspect]
     Indication: TYPE 1 DIABETES MELLITUS
     Dosage: 10 U
     Dates: start: 20070730
  3. HUMALOG [Concomitant]
  4. ALTACE [Concomitant]
  5. FLAXSEED OIL [Concomitant]
  6. FISH OIL (OMEGA 3) [Concomitant]

REACTIONS (1)
  - HYPOGLYCAEMIA [None]
